FAERS Safety Report 5735686-2 (Version None)
Quarter: 2008Q2

REPORT INFORMATION
  Report Type: 
  Country: None (occurrence: None)
  Receive Date: 20080512
  Receipt Date: 20080508
  Transmission Date: 20081010
  Serious: Yes (Death)
  Sender: FDA-Public Use
  Company Number: US-GENENTECH-260484

PATIENT
  Sex: Female
  Weight: 58.05 kg

DRUGS (2)
  1. XOLAIR [Suspect]
     Indication: ASTHMA
     Dosage: 300 MG, 1/MONTH
     Route: 030
     Dates: start: 20030901
  2. FLOVENT [Concomitant]
     Dosage: UNK, BID

REACTIONS (1)
  - ASTHMA [None]
